FAERS Safety Report 8950916 (Version 2)
Quarter: 2013Q1

REPORT INFORMATION
  Report Type: Spontaneous
  Country: CA (occurrence: CA)
  Receive Date: 20121207
  Receipt Date: 20130118
  Transmission Date: 20140127
  Serious: Yes (Other)
  Sender: FDA-Public Use
  Company Number: CA-BAYER-2012-128742

PATIENT
  Age: 47 Year
  Sex: Female
  Weight: 52.15 kg

DRUGS (1)
  1. MAGNEVIST [Suspect]

REACTIONS (3)
  - Cough [None]
  - Dysphagia [None]
  - Pharyngeal erythema [None]
